FAERS Safety Report 19291304 (Version 15)
Quarter: 2024Q4

REPORT INFORMATION
  Report Type: Report from Study
  Country: CA (occurrence: CA)
  Receive Date: 20210523
  Receipt Date: 20241122
  Transmission Date: 20250115
  Serious: Yes (Hospitalization, Other)
  Sender: HLS THERAPEUTICS
  Company Number: CA-HLS-202005689

PATIENT
  Age: 64 Year
  Sex: Male
  Weight: 91 kg

DRUGS (5)
  1. CLOZARIL [Suspect]
     Active Substance: CLOZAPINE
     Indication: Product used for unknown indication
     Route: 048
  2. CLOZARIL [Suspect]
     Active Substance: CLOZAPINE
     Indication: Product used for unknown indication
     Route: 048
  3. CLOZARIL [Suspect]
     Active Substance: CLOZAPINE
     Indication: Product used for unknown indication
     Route: 048
     Dates: start: 20040329
  4. CLOZARIL [Suspect]
     Active Substance: CLOZAPINE
     Indication: Product used for unknown indication
     Dosage: ABRUPT DISCONTINUATION IN MID-APRIL 2022
     Route: 048
     Dates: start: 20181126
  5. CLOZARIL [Suspect]
     Active Substance: CLOZAPINE
     Indication: Product used for unknown indication
     Dosage: DRUG RESTARTED AROUND END OF APRIL 2022 (AFTER 2 WEEKS OF DISCONTINUATION) UNDER SUPERVISION
     Route: 065

REACTIONS (20)
  - Weight increased [Not Recovered/Not Resolved]
  - Treatment noncompliance [Recovered/Resolved]
  - Pneumonia aspiration [Unknown]
  - Blood pressure increased [Recovered/Resolved]
  - Treatment noncompliance [Recovered/Resolved]
  - Cholinergic rebound syndrome [Unknown]
  - Colorectal cancer [Unknown]
  - C-reactive protein increased [Recovering/Resolving]
  - Dizziness [Recovered/Resolved]
  - Dry mouth [Recovered/Resolved]
  - Headache [Recovered/Resolved]
  - Tachycardia [Recovered/Resolved]
  - Dyspepsia [Recovered/Resolved]
  - Red blood cell count decreased [Unknown]
  - Headache [Recovered/Resolved]
  - Pneumonia [Recovered/Resolved]
  - Sedation [Recovered/Resolved]
  - Tremor [Recovered/Resolved]
  - Troponin increased [Unknown]
  - Insomnia [Recovered/Resolved]

NARRATIVE: CASE EVENT DATE: 20181128
